FAERS Safety Report 8303772-9 (Version None)
Quarter: 2012Q2

REPORT INFORMATION
  Report Type: 
  Country: None (occurrence: None)
  Receive Date: 20120423
  Receipt Date: 20120413
  Transmission Date: 20120825
  Serious: Yes (Hospitalization)
  Sender: FDA-Public Use
  Company Number: PHHO2012FR005911

PATIENT
  Sex: Male

DRUGS (3)
  1. ZORTRESS [Suspect]
     Indication: RENAL TRANSPLANT
     Dosage: 1 MG, UNK
     Route: 048
     Dates: start: 20110520, end: 20110624
  2. PROGRAF [Concomitant]
     Indication: RENAL TRANSPLANT
     Dosage: UNK
     Route: 048
     Dates: start: 20110626
  3. MYCOPHENOLATE MOFETIL (CELLCEPT) [Concomitant]
     Indication: RENAL TRANSPLANT
     Dosage: 2 G, QD
     Route: 002
     Dates: start: 20120412

REACTIONS (1)
  - HAEMATURIA [None]
